FAERS Safety Report 21645241 (Version 1)
Quarter: 2022Q4

REPORT INFORMATION
  Report Type: Spontaneous
  Country: US (occurrence: US)
  Receive Date: 20221126
  Receipt Date: 20221126
  Transmission Date: 20230112
  Serious: No
  Sender: FDA-Public Use
  Company Number: US-BANNER LIFE SCIENCES, LLC-2022BAN000244

PATIENT

DRUGS (1)
  1. BAFIERTAM [Suspect]
     Active Substance: MONOMETHYL FUMARATE
     Indication: Product used for unknown indication
     Dosage: ONE 95MG CAPSULE  TWICE DAILY FOR 7 DAYS, THEN TWO CAPSULES (190MG) TWICE DAILY
     Route: 048
     Dates: start: 20220928, end: 20220928

REACTIONS (6)
  - Chest pain [Recovering/Resolving]
  - Pruritus [Recovering/Resolving]
  - Abdominal pain upper [Not Recovered/Not Resolved]
  - Dyspnoea [Recovering/Resolving]
  - Hot flush [Recovering/Resolving]
  - Rash [Recovering/Resolving]

NARRATIVE: CASE EVENT DATE: 20220928
